FAERS Safety Report 9596125 (Version 1)
Quarter: 2013Q4

REPORT INFORMATION
  Report Type: Spontaneous
  Country: US (occurrence: US)
  Receive Date: 20131004
  Receipt Date: 20131004
  Transmission Date: 20140711
  Serious: No
  Sender: FDA-Public Use
  Company Number: US-MYLANLABS-2012S1017297

PATIENT
  Age: 43 Year
  Sex: Female

DRUGS (1)
  1. CLINDAMYCIN/BENZOYL PEROXIDE GEL [Suspect]
     Route: 061
     Dates: start: 201207, end: 201208

REACTIONS (2)
  - Erythema [Recovered/Resolved]
  - Skin exfoliation [Recovered/Resolved]
